FAERS Safety Report 6585454-7 (Version None)
Quarter: 2010Q1

REPORT INFORMATION
  Report Type: 
  Country: None (occurrence: None)
  Receive Date: 20100217
  Receipt Date: 20100215
  Transmission Date: 20100710
  Serious: Yes (Death, Life-Threatening)
  Sender: FDA-Public Use
  Company Number: D0066515A

PATIENT
  Age: 83 Year
  Sex: Female
  Weight: 97 kg

DRUGS (8)
  1. AMOXICILLIN AND CLAVULANATE POTASSIUM [Suspect]
     Route: 065
  2. TORSEMIDE [Concomitant]
     Dosage: 10MG PER DAY
     Route: 048
  3. RANITIDINE HCL [Concomitant]
     Dosage: 300MG PER DAY
     Route: 048
  4. OXYGESIC [Concomitant]
     Dosage: 40MG PER DAY
     Route: 048
  5. METAMIZOL [Concomitant]
     Dosage: 2000MG PER DAY
     Route: 048
  6. TAVOR [Concomitant]
     Dosage: 2MG PER DAY
     Route: 048
  7. HEPARIN [Concomitant]
     Dosage: 15000IU PER DAY
     Route: 058
  8. DECORTIN H [Concomitant]
     Dosage: 30MG PER DAY
     Route: 048

REACTIONS (1)
  - SUBACUTE HEPATIC FAILURE [None]
